FAERS Safety Report 12307056 (Version 1)
Quarter: 2016Q2

REPORT INFORMATION
  Report Type: Spontaneous
  Country: US (occurrence: US)
  Receive Date: 20160426
  Receipt Date: 20160426
  Transmission Date: 20160815
  Serious: No
  Sender: FDA-Public Use
  Company Number: US-ALKERMES INC.-ALK-2015-001674

PATIENT

DRUGS (3)
  1. DOXEPIN [Suspect]
     Active Substance: DOXEPIN
     Indication: INSOMNIA
     Dosage: UNK
     Dates: end: 201512
  2. VIVITROL [Suspect]
     Active Substance: NALTREXONE
     Dosage: 380 MG, QMO
     Route: 030
     Dates: start: 20151214
  3. VIVITROL [Suspect]
     Active Substance: NALTREXONE
     Indication: DRUG DEPENDENCE
     Dosage: 380 MG, QMO
     Route: 030
     Dates: start: 201504, end: 20151001

REACTIONS (15)
  - Pollakiuria [Unknown]
  - Drug dependence [Unknown]
  - Feeling abnormal [Not Recovered/Not Resolved]
  - Drug administration error [Recovered/Resolved]
  - Migraine [Not Recovered/Not Resolved]
  - Dependence [Recovered/Resolved]
  - Drug abuse [Unknown]
  - Photophobia [Unknown]
  - Dyspnoea [Unknown]
  - Back pain [Not Recovered/Not Resolved]
  - Hot flush [Unknown]
  - Alcohol use [Recovered/Resolved]
  - Tinnitus [Recovering/Resolving]
  - Hypertension [Recovered/Resolved]
  - Drug dose omission [Recovered/Resolved]

NARRATIVE: CASE EVENT DATE: 2015
